FAERS Safety Report 18710425 (Version 1)
Quarter: 2021Q1

REPORT INFORMATION
  Report Type: Spontaneous
  Country: US (occurrence: US)
  Receive Date: 20210107
  Receipt Date: 20210107
  Transmission Date: 20210419
  Serious: No
  Sender: FDA-Public Use
  Company Number: US-GLENMARK PHARMACEUTICALS-2020GMK045905

PATIENT

DRUGS (1)
  1. RANITIDINE TABLETS USP, 150 MG [Suspect]
     Active Substance: RANITIDINE HYDROCHLORIDE
     Indication: DYSPEPSIA
     Dosage: 1 TO 2 TABLETS ONCE A DAY AS NEEDED (PRN)
     Route: 048
     Dates: start: 201905, end: 201912

REACTIONS (6)
  - Pruritus [Not Recovered/Not Resolved]
  - Recalled product administered [Unknown]
  - Nausea [Recovered/Resolved]
  - Abdominal pain upper [Recovered/Resolved]
  - Eructation [Recovered/Resolved]
  - Anal incontinence [Recovering/Resolving]

NARRATIVE: CASE EVENT DATE: 201905
